FAERS Safety Report 23834220 (Version 3)
Quarter: 2024Q4

REPORT INFORMATION
  Report Type: Spontaneous
  Country: US (occurrence: US)
  Receive Date: 20240509
  Receipt Date: 20241017
  Transmission Date: 20250115
  Serious: No
  Sender: ROCHE
  Company Number: US-ROCHE-3509319

PATIENT
  Age: 29 Year
  Sex: Female

DRUGS (6)
  1. EMICIZUMAB [Suspect]
     Active Substance: EMICIZUMAB
     Indication: Factor VIII deficiency
     Dosage: PROPHYLAXIS EVERY 4 WEEKS DURING HER PREGNANCY.
     Route: 065
  2. EMICIZUMAB [Suspect]
     Active Substance: EMICIZUMAB
     Indication: Haemorrhage prophylaxis
  3. TRANEXAMIC ACID [Suspect]
     Active Substance: TRANEXAMIC ACID
     Indication: Haemorrhage prophylaxis
     Route: 065
  4. NOVOSEVEN [Suspect]
     Active Substance: COAGULATION FACTOR VIIA RECOMBINANT HUMAN
     Indication: Factor VIII deficiency
     Route: 065
  5. NOVOSEVEN [Suspect]
     Active Substance: COAGULATION FACTOR VIIA RECOMBINANT HUMAN
     Indication: Haemorrhage prophylaxis
  6. OXYTOCIN [Suspect]
     Active Substance: OXYTOCIN
     Indication: Labour induction
     Route: 065

REACTIONS (3)
  - Maternal exposure during pregnancy [Unknown]
  - Postpartum haemorrhage [Unknown]
  - Maternal exposure during breast feeding [Unknown]
